FAERS Safety Report 6987490-5 (Version None)
Quarter: 2010Q3

REPORT INFORMATION
  Report Type: 
  Country: None (occurrence: None)
  Receive Date: 20100916
  Receipt Date: 20100910
  Transmission Date: 20110219
  Serious: Yes (Death, Hospitalization)
  Sender: FDA-Public Use
  Company Number: PHHO2010RU06329

PATIENT
  Sex: Male
  Weight: 100 kg

DRUGS (2)
  1. CYCLOSPORINE [Suspect]
     Dosage: 2000 MG, ONCE/SINGLE
     Dates: start: 20091119
  2. ICL670A ICL+DISTAB [Suspect]
     Indication: IRON OVERLOAD
     Dosage: 2000 MG
     Route: 048
     Dates: start: 20091119, end: 20100413

REACTIONS (5)
  - HYPOTONIA [None]
  - MALIGNANT NEOPLASM PROGRESSION [None]
  - NAUSEA [None]
  - THERAPEUTIC AGENT TOXICITY [None]
  - VOMITING [None]
